FAERS Safety Report 4877080-2 (Version None)
Quarter: 2006Q1

REPORT INFORMATION
  Report Type: 
  Country: None (occurrence: None)
  Receive Date: 20060110
  Receipt Date: 20060105
  Transmission Date: 20060701
  Serious: Yes (Other)
  Sender: FDA-Public Use
  Company Number: GB-MERCK-0601GBR00027

PATIENT
  Age: 76 Year
  Sex: Female
  Weight: 53 kg

DRUGS (10)
  1. ZETIA [Suspect]
     Indication: BLOOD CHOLESTEROL INCREASED
     Route: 048
     Dates: start: 20051012, end: 20051214
  2. ASPIRIN [Concomitant]
     Indication: MYOCARDIAL ISCHAEMIA
     Route: 048
     Dates: start: 20030404
  3. AMILORIDE HYDROCHLORIDE AND BUMETANIDE [Concomitant]
     Indication: LEFT VENTRICULAR FAILURE
     Route: 048
     Dates: start: 20030609
  4. RAMIPRIL [Concomitant]
     Indication: HYPERTENSION
     Route: 048
     Dates: start: 20020325
  5. LANSOPRAZOLE [Concomitant]
     Indication: HIATUS HERNIA
     Route: 048
     Dates: start: 20050722
  6. NITROGLYCERIN [Concomitant]
     Route: 065
     Dates: start: 20030404
  7. IPRATROPIUM BROMIDE [Concomitant]
     Route: 055
     Dates: start: 20030901
  8. ALBUTEROL SULFATE AND IPRATROPIUM BROMIDE [Concomitant]
     Route: 055
     Dates: start: 20030901
  9. FLUTICASONE PROPIONATE [Concomitant]
     Route: 055
     Dates: start: 20030901
  10. ALBUTEROL SULFATE [Concomitant]
     Route: 055
     Dates: start: 20030901

REACTIONS (1)
  - RAYNAUD'S PHENOMENON [None]
